FAERS Safety Report 21298075 (Version 2)
Quarter: 2022Q4

REPORT INFORMATION
  Report Type: Spontaneous
  Country: JP (occurrence: JP)
  Receive Date: 20220906
  Receipt Date: 20221011
  Transmission Date: 20230113
  Serious: Yes (Death)
  Sender: FDA-Public Use
  Company Number: JP-PFIZER INC-202201109433

PATIENT
  Age: 85 Year
  Sex: Male

DRUGS (9)
  1. PAXLOVID [Suspect]
     Active Substance: NIRMATRELVIR\RITONAVIR
     Indication: COVID-19 treatment
     Dosage: [PF-07321332 150 MG]/[RITONAVIR 100 MG]; 2X/DAY
     Route: 050
     Dates: start: 20220819, end: 20220819
  2. VONOPRAZAN FUMARATE [Concomitant]
     Active Substance: VONOPRAZAN FUMARATE
     Indication: Prophylaxis against gastrointestinal ulcer
     Dosage: 10 MG, 1X/DAY
     Route: 050
     Dates: start: 202201, end: 20220819
  3. ASPIRIN [Concomitant]
     Active Substance: ASPIRIN
     Indication: Cerebral infarction
     Dosage: 100 MG, 1X/DAY
     Route: 050
     Dates: start: 202201, end: 20220819
  4. BIO-THREE [Concomitant]
     Active Substance: HERBALS
     Indication: Faeces soft
     Dosage: 1 G, 3X/DAY
     Route: 050
     Dates: start: 202201, end: 20220819
  5. EPINASTINE [Concomitant]
     Active Substance: EPINASTINE
     Indication: Dermatitis
     Dosage: 20 MG, 1X/DAY
     Route: 050
     Dates: start: 202201, end: 20220819
  6. SULFAMETHOXAZOLE\TRIMETHOPRIM [Concomitant]
     Active Substance: SULFAMETHOXAZOLE\TRIMETHOPRIM
     Indication: Urinary tract infection
     Dosage: UNK, 2X/DAY
     Route: 050
     Dates: start: 20220809, end: 20220815
  7. CEFCAPENE PIVOXIL [Concomitant]
     Active Substance: CEFCAPENE PIVOXIL
     Indication: Infection
     Dosage: 100 MG, 3X/DAY
     Route: 050
     Dates: start: 20220801, end: 20220807
  8. MINOCYCLINE [Concomitant]
     Active Substance: MINOCYCLINE HYDROCHLORIDE
     Indication: Infection
     Dosage: 100 MG, 2X/DAY
     Route: 050
     Dates: start: 20220801, end: 20220809
  9. ANHIBA [Concomitant]
     Active Substance: ACETAMINOPHEN
     Indication: Pyrexia
     Dosage: 400 MG, 1X/DAY
     Route: 054
     Dates: start: 20220818, end: 20220819

REACTIONS (6)
  - Hypoxia [Fatal]
  - Productive cough [Fatal]
  - Blood pressure decreased [Fatal]
  - Pneumonia bacterial [Fatal]
  - Cardiac arrest [Fatal]
  - Off label use [Unknown]

NARRATIVE: CASE EVENT DATE: 20220819
